FAERS Safety Report 19139573 (Version 1)
Quarter: 2021Q2

REPORT INFORMATION
  Report Type: Spontaneous
  Country: FR (occurrence: FR)
  Receive Date: 20210415
  Receipt Date: 20210415
  Transmission Date: 20210717
  Serious: Yes (Hospitalization)
  Sender: FDA-Public Use
  Company Number: FR-PFIZER INC-2021379287

PATIENT
  Age: 70 Year
  Sex: Male

DRUGS (2)
  1. TAHOR [Suspect]
     Active Substance: ATORVASTATIN CALCIUM
     Indication: CEREBROVASCULAR ACCIDENT
     Dosage: 80 MG, 1X/DAY
     Route: 048
     Dates: start: 201907, end: 202002
  2. ASPIRINE PROTECT [Concomitant]
     Active Substance: ASPIRIN
     Route: 048

REACTIONS (3)
  - Dizziness [Recovering/Resolving]
  - CANVAS syndrome [Recovering/Resolving]
  - Hypoacusis [Recovered/Resolved]

NARRATIVE: CASE EVENT DATE: 202002
